FAERS Safety Report 6479735-5 (Version None)
Quarter: 2009Q4

REPORT INFORMATION
  Report Type: 
  Country: None (occurrence: None)
  Receive Date: 20091208
  Receipt Date: 20091124
  Transmission Date: 20100525
  Serious: Yes (Death, Other)
  Sender: FDA-Public Use
  Company Number: US-BAYER-200920275NA

PATIENT
  Age: 59 Year
  Sex: Male

DRUGS (31)
  1. MAGNEVIST [Suspect]
     Indication: NUCLEAR MAGNETIC RESONANCE IMAGING
     Dosage: TOTAL DAILY DOSE: 15 ML
     Route: 042
     Dates: start: 20050713, end: 20050713
  2. MAGNEVIST [Suspect]
     Dates: start: 20040924, end: 20040924
  3. MAGNEVIST [Suspect]
     Dates: start: 20050708, end: 20050708
  4. OMNISCAN [Suspect]
     Indication: NUCLEAR MAGNETIC RESONANCE IMAGING
     Dates: start: 20040813, end: 20040813
  5. OMNISCAN [Suspect]
     Dates: start: 20050107, end: 20050107
  6. OMNISCAN [Suspect]
     Dates: start: 20050311, end: 20050311
  7. OMNISCAN [Suspect]
     Dates: start: 20030922, end: 20030922
  8. OMNISCAN [Suspect]
     Dates: start: 20050105, end: 20050105
  9. OMNISCAN [Suspect]
     Dates: start: 20030506, end: 20030506
  10. OMNISCAN [Suspect]
     Dates: start: 20040730, end: 20040730
  11. TOPROL-XL [Concomitant]
     Dosage: TOTAL DAILY DOSE: 200 MG
     Route: 048
  12. ROCALTROL [Concomitant]
     Dosage: TOTAL DAILY DOSE: 0.50 ?G
     Route: 048
  13. RENAX [Concomitant]
     Dosage: TOTAL DAILY DOSE: 2.5 MG
     Route: 048
  14. RENAGEL [Concomitant]
     Dosage: TOTAL DAILY DOSE: 3600 MG
     Route: 048
  15. QUININE [Concomitant]
     Dosage: TOTAL DAILY DOSE: 260 MG
     Route: 048
  16. PROZAC [Concomitant]
     Dosage: TOTAL DAILY DOSE: 20 MG
     Route: 048
  17. PLAVIX [Concomitant]
     Dosage: TOTAL DAILY DOSE: 75 MG
     Route: 048
  18. ENALAPRIL [Concomitant]
     Dosage: TOTAL DAILY DOSE: 5.0 MG
     Route: 048
  19. CALCIUM CARBONATE [Concomitant]
     Dosage: TOTAL DAILY DOSE: 2500 MG
     Route: 048
  20. PHOSLO [Concomitant]
  21. ARANESP [Concomitant]
  22. SENSIPAR [Concomitant]
  23. FOSRENOL [Concomitant]
     Dosage: TOTAL DAILY DOSE: 2000 MG  UNIT DOSE: 500 MG
  24. METOPROLOL [Concomitant]
  25. LEXAPRO [Concomitant]
  26. GABAPENTIN [Concomitant]
  27. ERGOCALCIFEROL [Concomitant]
  28. HEPARIN [Concomitant]
     Dosage: 5000 UNITS SQ Q12HRS
  29. DIGOXIN [Concomitant]
  30. COMBIVENT [Concomitant]
  31. XENADERM [Concomitant]

REACTIONS (22)
  - DEFORMITY [None]
  - GAIT DISTURBANCE [None]
  - HYPOAESTHESIA [None]
  - JOINT RANGE OF MOTION DECREASED [None]
  - MOBILITY DECREASED [None]
  - MOTOR DYSFUNCTION [None]
  - MUSCLE CONTRACTURE [None]
  - MUSCLE TIGHTNESS [None]
  - MUSCULAR WEAKNESS [None]
  - MUSCULOSKELETAL STIFFNESS [None]
  - NEPHROGENIC SYSTEMIC FIBROSIS [None]
  - OEDEMA PERIPHERAL [None]
  - PAIN [None]
  - PARALYSIS [None]
  - PIGMENTATION DISORDER [None]
  - PRURITUS GENERALISED [None]
  - SKIN DISCOLOURATION [None]
  - SKIN EXFOLIATION [None]
  - SKIN HYPERTROPHY [None]
  - SKIN INDURATION [None]
  - SKIN LESION [None]
  - SKIN TIGHTNESS [None]
